FAERS Safety Report 4963538-4 (Version None)
Quarter: 2006Q1

REPORT INFORMATION
  Report Type: 
  Country: None (occurrence: None)
  Receive Date: 20060201
  Receipt Date: 20051114
  Transmission Date: 20060701
  Serious: No
  Sender: FDA-Public Use
  Company Number: 2005PV004719

PATIENT
  Age: 57 Year
  Sex: Female
  Weight: 129.7287 kg

DRUGS (8)
  1. BYETTA [Suspect]
     Indication: DIABETES MELLITUS NON-INSULIN-DEPENDENT
     Dosage: SEE IMAGE
     Route: 058
     Dates: start: 20050901, end: 20050101
  2. BYETTA [Suspect]
     Indication: DIABETES MELLITUS NON-INSULIN-DEPENDENT
     Dosage: SEE IMAGE
     Route: 058
     Dates: start: 20050101
  3. AMARYL [Concomitant]
  4. AVANDIA [Concomitant]
  5. AVAPRO [Concomitant]
  6. PERCOCET [Concomitant]
  7. NEXIUM [Concomitant]
  8. ACIPHEX [Concomitant]

REACTIONS (2)
  - DYSPNOEA [None]
  - EXTRASYSTOLES [None]
